FAERS Safety Report 17266083 (Version 2)
Quarter: 2020Q1

REPORT INFORMATION
  Report Type: Report from Study
  Country: IE (occurrence: IE)
  Receive Date: 20200114
  Receipt Date: 20200211
  Transmission Date: 20200409
  Serious: Yes (Hospitalization)
  Sender: FDA-Public Use
  Company Number: IE-SA-2019SA218116

PATIENT
  Age: 50 Year
  Sex: Male

DRUGS (2)
  1. CALCICHEW [Concomitant]
     Active Substance: CALCIUM CARBONATE
     Dosage: 1 DF, QD
     Route: 050
  2. ALEMTUZUMAB [Suspect]
     Active Substance: ALEMTUZUMAB
     Indication: MULTIPLE SCLEROSIS
     Dosage: UNK
     Route: 041

REACTIONS (2)
  - Herpes zoster [Recovered/Resolved]
  - Fall [Unknown]
